FAERS Safety Report 6077935-X (Version None)
Quarter: 2009Q1

REPORT INFORMATION
  Report Type: 
  Country: None (occurrence: None)
  Receive Date: 20090213
  Receipt Date: 20090206
  Transmission Date: 20090719
  Serious: Yes (Other)
  Sender: FDA-Public Use
  Company Number: FR-ROCHE-613102

PATIENT
  Sex: Female

DRUGS (18)
  1. RIVOTRIL [Suspect]
     Indication: DRUG USE FOR UNKNOWN INDICATION
     Route: 048
     Dates: start: 20090117, end: 20090118
  2. CALCIPARINE [Suspect]
     Indication: DRUG USE FOR UNKNOWN INDICATION
     Route: 058
     Dates: start: 20090117, end: 20090118
  3. ACUPAN [Suspect]
     Indication: DRUG USE FOR UNKNOWN INDICATION
     Route: 030
     Dates: start: 20090117, end: 20090118
  4. GELOX [Suspect]
     Indication: DRUG USE FOR UNKNOWN INDICATION
     Route: 048
     Dates: start: 20090117, end: 20090118
  5. INIPOMP [Suspect]
     Indication: DRUG USE FOR UNKNOWN INDICATION
     Route: 048
     Dates: start: 20090117, end: 20090118
  6. AUGMENTIN '125' [Suspect]
     Indication: DRUG USE FOR UNKNOWN INDICATION
     Route: 048
     Dates: start: 20090114, end: 20090118
  7. LYRICA [Suspect]
     Indication: DRUG USE FOR UNKNOWN INDICATION
     Route: 048
     Dates: start: 20090117, end: 20090118
  8. PERFALGAN [Concomitant]
     Dates: start: 20090114
  9. PERFALGAN [Concomitant]
  10. PROGRAF [Concomitant]
  11. CELLCEPT [Concomitant]
  12. SOLUPRED [Concomitant]
  13. ATORVASTATIN CALCIUM [Concomitant]
  14. TENORMIN [Concomitant]
  15. SPECIAFOLDINE [Concomitant]
  16. TRIATEC [Concomitant]
  17. NOVONORM [Concomitant]
     Dates: end: 20090115
  18. ACTOS [Concomitant]
     Dates: end: 20090115

REACTIONS (1)
  - PALATAL OEDEMA [None]
